FAERS Safety Report 8860286 (Version 1)
Quarter: 2012Q4

REPORT INFORMATION
  Report Type: 
  Country: US (occurrence: US)
  Receive Date: 20121025
  Receipt Date: 20121025
  Transmission Date: 20130627
  Serious: No
  Sender: FDA-Public Use
  Company Number: US-PFIZER INC-2012266929

PATIENT
  Age: 51 Year
  Sex: Male
  Weight: 58.96 kg

DRUGS (3)
  1. CHANTIX [Suspect]
     Indication: SMOKING CESSATION THERAPY
     Dosage: UNK
     Route: 048
     Dates: start: 201203, end: 201204
  2. ASPIRIN [Concomitant]
     Dosage: UNK
  3. IBUPROFEN [Concomitant]
     Dosage: UNK

REACTIONS (4)
  - Agitation [Recovering/Resolving]
  - Abnormal behaviour [Recovering/Resolving]
  - Mood swings [Unknown]
  - Weight increased [Unknown]
